FAERS Safety Report 4525363-8 (Version None)
Quarter: 2004Q4

REPORT INFORMATION
  Report Type: 
  Country: None (occurrence: None)
  Receive Date: 20041117
  Receipt Date: 20030612
  Transmission Date: 20050328
  Serious: Yes (Other)
  Sender: FDA-Public Use
  Company Number: C2002-1762.01

PATIENT
  Age: 51 Year
  Sex: Male

DRUGS (10)
  1. CLOZAPINE [Suspect]
     Indication: PSYCHOTIC DISORDER
     Dosage: 100MG TID, ORAL
     Route: 048
     Dates: start: 20020224
  2. CLOZAPINE [Suspect]
     Indication: SCHIZOPHRENIA
     Dosage: 100MG TID, ORAL
     Route: 048
     Dates: start: 20020224
  3. CLOZAPINE [Suspect]
     Indication: PSYCHOTIC DISORDER
     Dosage: 75 MG TID, ORAL
     Route: 048
     Dates: start: 20020224
  4. CLOZAPINE [Suspect]
     Indication: SCHIZOPHRENIA
     Dosage: 75 MG TID, ORAL
     Route: 048
     Dates: start: 20020224
  5. ACETAMINOPHEN [Concomitant]
  6. CALCIUM [Concomitant]
  7. DIVALPROATE SODIUM [Concomitant]
  8. GABAPENTIN [Concomitant]
  9. OXYBUTYNIN [Concomitant]
  10. DIPHENHYDRAMINE [Concomitant]

REACTIONS (2)
  - NEUTROPHIL COUNT DECREASED [None]
  - WHITE BLOOD CELL COUNT DECREASED [None]
